FAERS Safety Report 10065271 (Version 2)
Quarter: 2014Q2

REPORT INFORMATION
  Report Type: Report from Study
  Country: JP (occurrence: JP)
  Receive Date: 20140408
  Receipt Date: 20140523
  Transmission Date: 20141212
  Serious: Yes (Hospitalization)
  Sender: FDA-Public Use
  Company Number: JP-PFIZER INC-2014094954

PATIENT
  Age: 92 Year
  Sex: Female
  Weight: 42.2 kg

DRUGS (4)
  1. XELJANZ [Suspect]
     Indication: RHEUMATOID ARTHRITIS
     Dosage: 5 MG, 1X/DAY
     Route: 048
     Dates: start: 20131026, end: 20140320
  2. MEDROL [Concomitant]
     Dosage: 2 MG, DAILY
     Route: 048
  3. JUVELA N [Concomitant]
     Route: 048
  4. METHYCOBAL [Concomitant]
     Route: 048

REACTIONS (1)
  - Cerebral infarction [Not Recovered/Not Resolved]
